FAERS Safety Report 6987420-6 (Version None)
Quarter: 2010Q3

REPORT INFORMATION
  Report Type: 
  Country: None (occurrence: None)
  Receive Date: 20100916
  Receipt Date: 20100909
  Transmission Date: 20110219
  Serious: Yes (Life-Threatening, Hospitalization)
  Sender: FDA-Public Use
  Company Number: FR-BRISTOL-MYERS SQUIBB COMPANY-15280027

PATIENT
  Age: 75 Year
  Sex: Female

DRUGS (7)
  1. COUMADIN [Suspect]
     Indication: DEEP VEIN THROMBOSIS
     Dates: end: 20100310
  2. IXPRIM [Concomitant]
  3. ZOLPIDEM [Concomitant]
  4. TERCIAN [Concomitant]
  5. LEXOMIL [Concomitant]
     Indication: PSYCHOTIC DISORDER
  6. FUROSEMIDE [Concomitant]
  7. PRITOR [Concomitant]
     Indication: HYPERTENSION

REACTIONS (5)
  - ABNORMAL BEHAVIOUR [None]
  - FALL [None]
  - HAEMATOMA [None]
  - RHABDOMYOLYSIS [None]
  - SUBDURAL HAEMATOMA [None]
